FAERS Safety Report 10470412 (Version 1)
Quarter: 2014Q3

REPORT INFORMATION
  Report Type: Other
  Country: GB (occurrence: GB)
  Receive Date: 20140923
  Receipt Date: 20140923
  Transmission Date: 20150326
  Serious: Yes (Hospitalization)
  Sender: FDA-Public Use
  Company Number: GB-MYLANLABS-2014M1004138

PATIENT

DRUGS (15)
  1. CARBIMAZOLE [Concomitant]
     Active Substance: CARBIMAZOLE
     Dosage: 20 MG, QD
     Route: 048
  2. PERINDOPRIL [Concomitant]
     Active Substance: PERINDOPRIL
     Dosage: 2 MG, QD
  3. WARFARIN [Concomitant]
     Active Substance: WARFARIN
     Dosage: 1MG - MONDAY TO FRIDAY, 2MG - SATURDAY AND SUNDAY
  4. FUROSEMIDE. [Concomitant]
     Active Substance: FUROSEMIDE
     Dosage: IN THE MORNING
  5. SALBUTAMOL [Concomitant]
     Active Substance: ALBUTEROL
     Dosage: 2PUFFS PRN
     Route: 055
  6. SERETIDE [Concomitant]
     Active Substance: FLUTICASONE FUROATE\SALMETEROL XINAFOATE
     Route: 055
  7. ISPAGHULA EXTRACT\PSYLLIUM [Concomitant]
     Active Substance: PLANTAGO OVATA SEED\PLANTAGO SEED
     Dosage: 1 DF, QD
  8. SODIUM CHLORIDE. [Concomitant]
     Active Substance: SODIUM CHLORIDE
     Dosage: PRN - TAKE A REQUIRED
     Route: 055
  9. SPIRONOLACTONE. [Concomitant]
     Active Substance: SPIRONOLACTONE
     Dosage: 25 MG, QD
     Route: 048
  10. MOMETASONE [Concomitant]
     Active Substance: MOMETASONE
     Dosage: 2SPRAYS OD - 50MCG X 2 SPRAYS = 100MCG
     Route: 045
  11. IPRATROPIUM BROMIDE. [Suspect]
     Active Substance: IPRATROPIUM BROMIDE
     Indication: CHRONIC OBSTRUCTIVE PULMONARY DISEASE
     Dosage: 500MCG BD - TDS
     Route: 055
  12. TAMSULOSIN [Concomitant]
     Active Substance: TAMSULOSIN
     Dosage: 400 ?G, QD
     Route: 048
  13. GLYCERYL TRINITRATE [Concomitant]
     Active Substance: NITROGLYCERIN
     Dosage: PRN - TAKE AS REQUIRED
  14. ATORVASTATIN [Concomitant]
     Active Substance: ATORVASTATIN
     Dosage: AT NIGHT.
     Route: 048
  15. IVABRADINE [Concomitant]
     Active Substance: IVABRADINE
     Dosage: 2.5MG BD

REACTIONS (3)
  - Urinary retention [Not Recovered/Not Resolved]
  - Chronic obstructive pulmonary disease [Not Recovered/Not Resolved]
  - Dyspnoea [Not Recovered/Not Resolved]
